FAERS Safety Report 5760305-9 (Version None)
Quarter: 2008Q2

REPORT INFORMATION
  Report Type: 
  Country: None (occurrence: None)
  Receive Date: 20080602
  Receipt Date: 20080521
  Transmission Date: 20081010
  Serious: Yes (Other)
  Sender: FDA-Public Use
  Company Number: GXKR2008GB04678

PATIENT
  Age: 81 Year
  Sex: Female

DRUGS (9)
  1. WARFARIN SODIUM [Suspect]
     Indication: ATRIAL FIBRILLATION
     Dosage: 2 MG
     Dates: start: 20070301
  2. GLUCOSAMINE (GLUCOSAMINE) [Suspect]
     Indication: ARTHRITIS
     Dates: start: 20080301
  3. BENDROFLUMETHIAZIDE (BENDROFLUMETHIAZIDE) [Concomitant]
  4. CANDESARTAN CILEXETIL (CANDESARTAN CILEXETIL) [Concomitant]
  5. CINNARIZINE (CINNARIZINE) [Concomitant]
  6. GLUCOSAMINE HYDROCHLORIDE (GLUCOSAMINE HYDROCHLORIDE) [Concomitant]
  7. ACETAMINOPHEN [Concomitant]
  8. RABEPRAZOLE SODIUM [Concomitant]
  9. SOTALOL HCL [Concomitant]

REACTIONS (2)
  - DRUG INTERACTION [None]
  - INTERNATIONAL NORMALISED RATIO DECREASED [None]
